FAERS Safety Report 5206678-7 (Version None)
Quarter: 2007Q1

REPORT INFORMATION
  Report Type: 
  Country: None (occurrence: None)
  Receive Date: 20070109
  Receipt Date: 20061225
  Transmission Date: 20070707
  Serious: Yes (Hospitalization)
  Sender: FDA-Public Use
  Company Number: GXKR2006JP08494

PATIENT
  Age: 74 Year
  Sex: Female

DRUGS (2)
  1. AMANTADINE HCL [Suspect]
     Indication: DEPRESSION
     Dosage: 200 MG, QD
  2. DROXIDOPA (DROXIDOPA) [Concomitant]

REACTIONS (9)
  - ABASIA [None]
  - COMMUNICATION DISORDER [None]
  - DRUG TOXICITY [None]
  - DYSSTASIA [None]
  - MYOCLONUS [None]
  - PYREXIA [None]
  - REFLEXES ABNORMAL [None]
  - VISUAL DISTURBANCE [None]
  - VOMITING [None]
